FAERS Safety Report 9448069 (Version 1)
Quarter: 2013Q3

REPORT INFORMATION
  Report Type: Spontaneous
  Country: BR (occurrence: BR)
  Receive Date: 20130808
  Receipt Date: 20130808
  Transmission Date: 20140515
  Serious: Yes (Other)
  Sender: FDA-Public Use
  Company Number: BR-AMGEN-BRASP2013055394

PATIENT
  Age: 76 Year
  Sex: Female
  Weight: 62 kg

DRUGS (6)
  1. ENBREL [Suspect]
     Indication: RHEUMATOID ARTHRITIS
     Dosage: 50 MG, ONCE WEEKLY
     Route: 058
     Dates: start: 201301
  2. PREDNISONE [Concomitant]
     Dosage: UNK
  3. MELOXICAM [Concomitant]
     Dosage: UNK
  4. ALENDRONATE SODIUM [Concomitant]
     Dosage: UNK
  5. CYCLOSPORINE [Concomitant]
     Dosage: UNK
  6. FERROUS SULFATE [Concomitant]
     Dosage: UNK

REACTIONS (6)
  - Local swelling [Unknown]
  - Hand deformity [Unknown]
  - Foot deformity [Unknown]
  - Alopecia [Not Recovered/Not Resolved]
  - Hyperkeratosis [Unknown]
  - Injection site pain [Unknown]
